FAERS Safety Report 7378028-1 (Version None)
Quarter: 2011Q1

REPORT INFORMATION
  Report Type: 
  Country: None (occurrence: None)
  Receive Date: 20110328
  Receipt Date: 20110317
  Transmission Date: 20110831
  Serious: Yes (Hospitalization)
  Sender: FDA-Public Use
  Company Number: US-SANOFI-AVENTIS-2011SA016787

PATIENT
  Age: 73 Year
  Sex: Male

DRUGS (2)
  1. LANTUS [Suspect]
     Dosage: DOSE:12 UNIT(S)
     Route: 058
  2. SOLOSTAR [Suspect]

REACTIONS (3)
  - HYPERSENSITIVITY [None]
  - DIABETIC KETOACIDOSIS [None]
  - VIRAL INFECTION [None]
